FAERS Safety Report 15719310 (Version 2)
Quarter: 2019Q2

REPORT INFORMATION
  Report Type: Spontaneous
  Country: US (occurrence: US)
  Receive Date: 20181213
  Receipt Date: 20190424
  Transmission Date: 20190711
  Serious: No
  Sender: FDA-Public Use
  Company Number: US-PFIZER INC-2018505654

PATIENT
  Age: 15 Year
  Sex: Male

DRUGS (1)
  1. GENOTROPIN MQ [Suspect]
     Active Substance: SOMATROPIN
     Indication: HORMONE THERAPY
     Dosage: 1 MG, UNK (1MG SHOT TO TUMMY AND LEG ABOUT 9:30 AT NIGHT BEFORE HE GOES TO SLEEP)
     Dates: start: 20180914

REACTIONS (4)
  - Pain [Recovered/Resolved]
  - Jaundice [Recovered/Resolved]
  - Rash erythematous [Recovered/Resolved]
  - Product prescribing error [Unknown]

NARRATIVE: CASE EVENT DATE: 20180920
